FAERS Safety Report 8084968 (Version 2)
Quarter: 2016Q4

REPORT INFORMATION
  Report Type: Report from Study
  Country: US (occurrence: US)
  Receive Date: 20110810
  Receipt Date: 20161103
  Transmission Date: 20170207
  Serious: Yes (Other)
  Sender: FDA-Public Use
  Company Number: US-PFIZER INC-2011183066

PATIENT
  Age: 59 Year
  Sex: Female
  Weight: 65.76 kg

DRUGS (1)
  1. VENLAFAXINE HCL [Suspect]
     Active Substance: VENLAFAXINE HYDROCHLORIDE
     Indication: ANXIETY
     Dosage: 37.5 MG, 1X/DAY
     Route: 048
     Dates: start: 2011, end: 2011

REACTIONS (5)
  - Disorientation [Recovered/Resolved]
  - Dizziness [Unknown]
  - Speech disorder [Recovered/Resolved]
  - Balance disorder [Unknown]
  - Urticaria [Recovered/Resolved]

NARRATIVE: CASE EVENT DATE: 2011
